FAERS Safety Report 5196936-7 (Version None)
Quarter: 2006Q4

REPORT INFORMATION
  Report Type: 
  Country: None (occurrence: None)
  Receive Date: 20061227
  Receipt Date: 20061213
  Transmission Date: 20070319
  Serious: Yes (Hospitalization)
  Sender: FDA-Public Use
  Company Number: 2006SP005355

PATIENT
  Age: 56 Year
  Sex: Male
  Weight: 71 kg

DRUGS (5)
  1. PEG-INTRON [Suspect]
     Indication: HEPATITIS C
     Dosage: 0.41 ML, QD; SC
     Route: 058
     Dates: start: 20051122, end: 20061003
  2. REBETOL [Suspect]
     Dosage: 400 MG, QAM; PO, 600 MG, QPM; PO, 800 MG; QD; PO, 600 MG, QD; PO; ORAL
     Route: 048
     Dates: start: 20060919, end: 20061005
  3. REBETOL [Suspect]
     Dosage: 400 MG, QAM; PO, 600 MG, QPM; PO, 800 MG; QD; PO, 600 MG, QD; PO; ORAL
     Route: 048
     Dates: start: 20051122
  4. REBETOL [Suspect]
     Dosage: 400 MG, QAM; PO, 600 MG, QPM; PO, 800 MG; QD; PO, 600 MG, QD; PO; ORAL
     Route: 048
     Dates: start: 20051122
  5. REBETOL [Suspect]
     Dosage: 400 MG, QAM; PO, 600 MG, QPM; PO, 800 MG; QD; PO, 600 MG, QD; PO; ORAL
     Route: 048
     Dates: start: 20060912

REACTIONS (31)
  - ANAEMIA OF CHRONIC DISEASE [None]
  - ASTHENIA [None]
  - BLOOD ALBUMIN DECREASED [None]
  - BLOOD PARATHYROID HORMONE DECREASED [None]
  - CALCINOSIS [None]
  - CHOLELITHIASIS [None]
  - CONFUSIONAL STATE [None]
  - COORDINATION ABNORMAL [None]
  - DISTURBANCE IN ATTENTION [None]
  - DIVERTICULITIS [None]
  - ERYTHROPOIESIS ABNORMAL [None]
  - FATIGUE [None]
  - GAIT DISTURBANCE [None]
  - HAEMOGLOBIN DECREASED [None]
  - HIATUS HERNIA [None]
  - HYPERCALCAEMIA [None]
  - HYPERTENSION [None]
  - INSOMNIA [None]
  - MEMORY IMPAIRMENT [None]
  - METABOLIC ENCEPHALOPATHY [None]
  - MONOCLONAL IMMUNOGLOBULIN PRESENT [None]
  - MULTIPLE MYELOMA [None]
  - MYALGIA [None]
  - NEOPLASM MALIGNANT [None]
  - NORMOCHROMIC NORMOCYTIC ANAEMIA [None]
  - PROTEIN ALBUMIN RATIO ABNORMAL [None]
  - PROTEINURIA [None]
  - RENAL FAILURE [None]
  - RENAL FAILURE ACUTE [None]
  - RENAL TUBULAR DISORDER [None]
  - WEIGHT DECREASED [None]
